FAERS Safety Report 10058038 (Version 1)
Quarter: 2014Q2

REPORT INFORMATION
  Report Type: Spontaneous
  Country: US (occurrence: None)
  Receive Date: 20140403
  Receipt Date: 20140403
  Transmission Date: 20141212
  Serious: Yes (Other)
  Sender: FDA-Public Use
  Company Number: None

PATIENT
  Age: 61 Year
  Sex: Female
  Weight: 66.23 kg

DRUGS (1)
  1. RECLAST INFUSION [Suspect]
     Indication: OSTEOPENIA

REACTIONS (17)
  - Body temperature increased [None]
  - Influenza like illness [None]
  - Headache [None]
  - Arthralgia [None]
  - Arthralgia [None]
  - Pain in extremity [None]
  - Musculoskeletal pain [None]
  - Pain in jaw [None]
  - Toothache [None]
  - Nausea [None]
  - Myalgia [None]
  - No therapeutic response [None]
  - Insomnia [None]
  - Back pain [None]
  - Chills [None]
  - Asthenia [None]
  - Eye complication associated with device [None]
